FAERS Safety Report 6186220-7 (Version None)
Quarter: 2009Q2

REPORT INFORMATION
  Report Type: 
  Country: None (occurrence: None)
  Receive Date: 20090511
  Receipt Date: 20090430
  Transmission Date: 20091009
  Serious: Yes (Disabling, Other)
  Sender: FDA-Public Use
  Company Number: PHEH2007US02902

PATIENT
  Sex: Female
  Weight: 73.016 kg

DRUGS (4)
  1. ZOMETA [Suspect]
     Dosage: 4MG
  2. AREDIA [Suspect]
     Dosage: 90MG
  3. FASLODEX [Concomitant]
  4. ARIMIDEX [Concomitant]

REACTIONS (17)
  - ANHEDONIA [None]
  - ANXIETY [None]
  - CARDIAC FAILURE CONGESTIVE [None]
  - CARDIOMEGALY [None]
  - CHEST PAIN [None]
  - DECREASED INTEREST [None]
  - DYSPNOEA [None]
  - GENERAL PHYSICAL HEALTH DETERIORATION [None]
  - METASTASES TO BONE [None]
  - METASTASES TO LUNG [None]
  - ORAL DISORDER [None]
  - OSTEONECROSIS [None]
  - PAIN [None]
  - PAIN IN JAW [None]
  - PLEURAL FIBROSIS [None]
  - SPINAL DISORDER [None]
  - TOOTH DISORDER [None]
